FAERS Safety Report 22108516 (Version 1)
Quarter: 2023Q1

REPORT INFORMATION
  Report Type: Spontaneous
  Country: PT (occurrence: PT)
  Receive Date: 20230317
  Receipt Date: 20230317
  Transmission Date: 20230418
  Serious: Yes (Other)
  Sender: FDA-Public Use
  Company Number: PT-GILEAD-2023-0620271

PATIENT
  Age: 45 Year
  Sex: Male
  Weight: 150.5 kg

DRUGS (9)
  1. TYBOST [Suspect]
     Active Substance: COBICISTAT
     Indication: HIV infection
     Dosage: UNK
     Route: 065
     Dates: start: 2019
  2. DARUNAVIR [Concomitant]
     Active Substance: DARUNAVIR
  3. RALTEGRAVIR [Concomitant]
     Active Substance: RALTEGRAVIR
     Dosage: UNK
     Dates: start: 2019
  4. BUDESONIDE [Concomitant]
     Active Substance: BUDESONIDE
     Indication: Asthma
  5. FLUTICASONE PROPIONATE [Concomitant]
     Active Substance: FLUTICASONE PROPIONATE
     Indication: Asthma
  6. DOLUTEGRAVIR [Concomitant]
     Active Substance: DOLUTEGRAVIR
  7. DORAVIRINE [Concomitant]
     Active Substance: DORAVIRINE
  8. BECLOMETHASONE [Concomitant]
     Active Substance: BECLOMETHASONE
  9. PREDNISOLONE [Concomitant]
     Active Substance: PREDNISOLONE

REACTIONS (2)
  - Cushing^s syndrome [Recovering/Resolving]
  - Drug interaction [Recovered/Resolved]
